FAERS Safety Report 4758563-2 (Version None)
Quarter: 2005Q3

REPORT INFORMATION
  Report Type: 
  Country: None (occurrence: None)
  Receive Date: 20050826
  Receipt Date: 20050811
  Transmission Date: 20060218
  Serious: Yes (Hospitalization)
  Sender: FDA-Public Use
  Company Number: ENT 2005-0121

PATIENT
  Sex: Female

DRUGS (1)
  1. COMTESS (ENTACAPONE) [Suspect]

REACTIONS (2)
  - COMA [None]
  - DYSPHAGIA [None]
